FAERS Safety Report 25190867 (Version 2)
Quarter: 2025Q2

REPORT INFORMATION
  Report Type: Spontaneous
  Country: JP (occurrence: JP)
  Receive Date: 20250411
  Receipt Date: 20250507
  Transmission Date: 20250717
  Serious: Yes (Other)
  Sender: ELI LILLY AND COMPANY
  Company Number: JP-Merck Healthcare KGaA-2025016367

PATIENT

DRUGS (5)
  1. ERBITUX [Suspect]
     Active Substance: CETUXIMAB
     Indication: Product used for unknown indication
     Route: 041
  2. ENCORAFENIB [Suspect]
     Active Substance: ENCORAFENIB
     Indication: Product used for unknown indication
     Route: 048
  3. ENCORAFENIB [Suspect]
     Active Substance: ENCORAFENIB
     Route: 048
  4. BINIMETINIB [Suspect]
     Active Substance: BINIMETINIB
     Indication: Product used for unknown indication
     Route: 048
  5. BINIMETINIB [Suspect]
     Active Substance: BINIMETINIB
     Route: 048

REACTIONS (3)
  - Ileus [Unknown]
  - Palmar-plantar erythrodysaesthesia syndrome [Not Recovered/Not Resolved]
  - Skin disorder [Not Recovered/Not Resolved]
